FAERS Safety Report 21444691 (Version 1)
Quarter: 2022Q4

REPORT INFORMATION
  Report Type: Report from Study
  Country: CO (occurrence: CO)
  Receive Date: 20221012
  Receipt Date: 20221012
  Transmission Date: 20230113
  Serious: Yes (Other)
  Sender: FDA-Public Use
  Company Number: CO-ABBVIE-4149697

PATIENT
  Age: 58 Year
  Sex: Male
  Weight: 74 kg

DRUGS (2)
  1. HUMIRA [Suspect]
     Active Substance: ADALIMUMAB
     Indication: Psoriasis
     Dosage: FORM STRENGTH: 40 MILLIGRAM
     Route: 058
     Dates: end: 20220802
  2. HUMIRA [Suspect]
     Active Substance: ADALIMUMAB

REACTIONS (3)
  - Asphyxia [Not Recovered/Not Resolved]
  - Oropharyngeal discomfort [Not Recovered/Not Resolved]
  - Abdominal pain upper [Not Recovered/Not Resolved]

NARRATIVE: CASE EVENT DATE: 20220701
